FAERS Safety Report 6291876-4 (Version None)
Quarter: 2009Q3

REPORT INFORMATION
  Report Type: 
  Country: None (occurrence: None)
  Receive Date: 20090729
  Receipt Date: 20090717
  Transmission Date: 20100115
  Serious: Yes (Hospitalization, Other)
  Sender: FDA-Public Use
  Company Number: 232794K08USA

PATIENT
  Age: 47 Year
  Sex: Female
  Weight: 77 kg

DRUGS (4)
  1. REBIF [Suspect]
     Indication: MULTIPLE SCLEROSIS
     Dosage: 44 MCG, 3 IN 1 WEEKS, SUBCUTANEOUS, SUBCUTANEOUS
     Route: 058
     Dates: start: 20061201, end: 20081101
  2. REBIF [Suspect]
     Indication: MULTIPLE SCLEROSIS
     Dosage: 44 MCG, 3 IN 1 WEEKS, SUBCUTANEOUS, SUBCUTANEOUS
     Route: 058
     Dates: start: 20080101
  3. PLAVIX [Concomitant]
  4. LIPITOR [Concomitant]

REACTIONS (5)
  - INJECTION SITE HYPERTROPHY [None]
  - INJECTION SITE PAIN [None]
  - MUSCULOSKELETAL DISORDER [None]
  - UTERINE HAEMORRHAGE [None]
  - UTERINE LEIOMYOMA [None]
